FAERS Safety Report 19694934 (Version 1)
Quarter: 2021Q3

REPORT INFORMATION
  Report Type: Spontaneous
  Country: CA (occurrence: CA)
  Receive Date: 20210813
  Receipt Date: 20210813
  Transmission Date: 20211014
  Serious: Yes (Other)
  Sender: FDA-Public Use
  Company Number: CA-LUPIN PHARMACEUTICALS INC.-2021-14401

PATIENT
  Age: 51 Year
  Sex: Female

DRUGS (4)
  1. DULOXETINE. [Suspect]
     Active Substance: DULOXETINE
     Indication: DEPRESSION
     Dosage: UNK
     Route: 065
  2. PHENELZINE [Concomitant]
     Active Substance: PHENELZINE
     Dosage: 45 MILLIGRAM, BID
     Route: 048
  3. PHENELZINE [Concomitant]
     Active Substance: PHENELZINE
     Indication: DEPRESSION
     Dosage: 15 MILLIGRAM, BID
     Route: 048
  4. KETAMINE [Concomitant]
     Active Substance: KETAMINE
     Indication: DEPRESSION
     Dosage: 0.5 MILLIGRAM/KILOGRAM
     Route: 042

REACTIONS (1)
  - Drug ineffective [Unknown]
